FAERS Safety Report 8032966-5 (Version None)
Quarter: 2012Q1

REPORT INFORMATION
  Report Type: 
  Country: None (occurrence: None)
  Receive Date: 20120110
  Receipt Date: 20120109
  Transmission Date: 20120608
  Serious: Yes (Hospitalization)
  Sender: FDA-Public Use
  Company Number: US-BAYER-2012-002546

PATIENT
  Sex: Male

DRUGS (2)
  1. BETAPACE [Suspect]
     Dosage: UNK
     Dates: start: 20110701
  2. BETAPACE [Suspect]
     Dosage: UNK

REACTIONS (1)
  - CARDIAC PACEMAKER INSERTION [None]
